FAERS Safety Report 11511737 (Version 2)
Quarter: 2015Q3

REPORT INFORMATION
  Report Type: Spontaneous
  Country: US (occurrence: US)
  Receive Date: 20150915
  Receipt Date: 20150922
  Transmission Date: 20151125
  Serious: Yes (Other)
  Sender: FDA-Public Use
  Company Number: US-ALLERGAN-1518434US

PATIENT
  Age: 67 Year
  Sex: Female

DRUGS (1)
  1. REFRESH P.M. [Suspect]
     Active Substance: MINERAL OIL\PETROLATUM
     Indication: DRY EYE
     Dosage: UNK
     Route: 047

REACTIONS (1)
  - Corneal dystrophy [Recovering/Resolving]

NARRATIVE: CASE EVENT DATE: 20150803
